FAERS Safety Report 18307643 (Version 1)
Quarter: 2020Q3

REPORT INFORMATION
  Report Type: Spontaneous
  Country: DE (occurrence: DE)
  Receive Date: 20200924
  Receipt Date: 20200924
  Transmission Date: 20201103
  Serious: Yes (Hospitalization)
  Sender: FDA-Public Use
  Company Number: DE-SA-2020SA256120

PATIENT

DRUGS (11)
  1. BUDESONIDE. [Suspect]
     Active Substance: BUDESONIDE
     Dosage: 0.4 MG, Q12H (2?0?2?0)
     Route: 055
  2. BISOPROLOL [Concomitant]
     Active Substance: BISOPROLOL
     Dosage: 2.5 MG, Q12H (0.5?0?0.5?0)
     Route: 048
  3. LEVOTHYROXINE SODIUM. [Concomitant]
     Active Substance: LEVOTHYROXINE SODIUM
     Dosage: 50 UG QOD, (1?0?0?0)
     Route: 048
  4. PANTOPRAZOLE [Concomitant]
     Active Substance: PANTOPRAZOLE
     Dosage: 40 MG, QD (1?0?0?0)
     Route: 048
  5. CLOPIDOGREL BISULFATE. [Suspect]
     Active Substance: CLOPIDOGREL BISULFATE
     Dosage: 75 MG, QD (1?0?0?0)
     Route: 048
  6. TRAMADOL HYDROCHLORIDE. [Suspect]
     Active Substance: TRAMADOL HYDROCHLORIDE
     Dosage: 50 MG, TOTAL (50 MG, 1X)
     Route: 048
  7. CANDESARTAN. [Concomitant]
     Active Substance: CANDESARTAN
     Dosage: 24 MG, QD (8 MG, 2?0?1?0)
     Route: 048
  8. EVOLOCUMAB [Concomitant]
     Active Substance: EVOLOCUMAB
     Dosage: 140 MG/ 2 WEEK
     Route: 058
  9. LEVOTHYROXINE SODIUM. [Concomitant]
     Active Substance: LEVOTHYROXINE SODIUM
     Dosage: 75 UG, QOD (1?0?0?0)
     Route: 048
  10. TORASEMIDE [Concomitant]
     Active Substance: TORSEMIDE
     Dosage: 10 MG, QD (1?0?0?0)
     Route: 048
  11. ACETYLSALICYLIC ACID [Suspect]
     Active Substance: ASPIRIN
     Dosage: 100 MG, QD (0?1?0?0)
     Route: 048

REACTIONS (5)
  - Nausea [Unknown]
  - Abdominal pain [Unknown]
  - Musculoskeletal pain [Unknown]
  - Abdominal pain upper [Unknown]
  - General physical health deterioration [Unknown]
